FAERS Safety Report 5310272-7 (Version None)
Quarter: 2007Q2

REPORT INFORMATION
  Report Type: 
  Country: None (occurrence: None)
  Receive Date: 20070427
  Receipt Date: 20070412
  Transmission Date: 20071010
  Serious: Yes (Other)
  Sender: FDA-Public Use
  Company Number: US-SHR-US-2007-005910

PATIENT
  Age: 50 Year
  Sex: Female
  Weight: 70.295 kg

DRUGS (14)
  1. BETASERON [Suspect]
     Indication: RELAPSING-REMITTING MULTIPLE SCLEROSIS
     Dosage: 2 MIU, UNK
     Route: 058
     Dates: start: 20070112, end: 20070101
  2. BETASERON [Suspect]
     Dosage: 4 MIU, UNK
     Route: 058
     Dates: start: 20070101, end: 20070127
  3. BETASERON [Suspect]
     Route: 058
     Dates: start: 19970101, end: 19970101
  4. COPAXONE [Concomitant]
     Dosage: 20 MG, UNK
  5. PROZAC [Concomitant]
     Dosage: 60 MG, 2X/DAY
     Route: 048
  6. TOPAMAX [Concomitant]
     Dosage: 200 MG, BED T.
     Route: 048
  7. LORAZEPAM [Concomitant]
     Dosage: 1 MG, 2X/DAY
  8. BACLOFEN [Concomitant]
     Dosage: 10 MG, 2X/DAY
  9. NEXIUM [Concomitant]
     Dosage: 80 MG, B.MEAL
     Route: 048
  10. LIDODERM [Concomitant]
     Dosage: UNK, ALT EVERY 12H
     Route: 003
  11. DETROL [Concomitant]
     Dosage: 40 MG, BED T.
  12. METHIMAZOLE [Concomitant]
     Dosage: 10 MG, BED T.
  13. CALCIUM CHLORIDE [Concomitant]
  14. VITAMIN B-12 [Concomitant]

REACTIONS (19)
  - ABASIA [None]
  - ASTHENIA [None]
  - BLADDER SPASM [None]
  - DRUG HYPERSENSITIVITY [None]
  - DYSARTHRIA [None]
  - DYSPHAGIA [None]
  - FEELING ABNORMAL [None]
  - HEADACHE [None]
  - INFLUENZA LIKE ILLNESS [None]
  - LOCAL SWELLING [None]
  - LYMPHADENOPATHY [None]
  - MONOPARESIS [None]
  - MOVEMENT DISORDER [None]
  - MULTIPLE SCLEROSIS [None]
  - MUSCLE SPASMS [None]
  - ORAL MUCOSAL BLISTERING [None]
  - PYREXIA [None]
  - SPEECH DISORDER [None]
  - URTICARIA [None]
